FAERS Safety Report 9927921 (Version 1)
Quarter: 2014Q1

REPORT INFORMATION
  Report Type: Spontaneous
  Country: US (occurrence: None)
  Receive Date: 20140226
  Receipt Date: 20140226
  Transmission Date: 20141002
  Serious: Yes (Other)
  Sender: FDA-Public Use
  Company Number: None

PATIENT
  Age: 68 Year
  Sex: Male
  Weight: 88.45 kg

DRUGS (4)
  1. GAMUNEX-C (20GM VIALS) 10% GRIFOLS [Suspect]
     Indication: CHRONIC INFLAMMATORY DEMYELINATING POLYRADICULONEUROPATHY
     Route: 042
     Dates: start: 20131031, end: 20131106
  2. BENADRYL [Concomitant]
  3. TYLENOL [Concomitant]
  4. IVIG [Concomitant]

REACTIONS (4)
  - Rash [None]
  - Skin exfoliation [None]
  - Dry skin [None]
  - Psoriasis [None]
